FAERS Safety Report 6152124-9 (Version None)
Quarter: 2009Q2

REPORT INFORMATION
  Report Type: 
  Country: None (occurrence: None)
  Receive Date: 20090410
  Receipt Date: 20090330
  Transmission Date: 20091009
  Serious: Yes (Hospitalization)
  Sender: FDA-Public Use
  Company Number: GB-PFIZER INC-2009183257

PATIENT

DRUGS (2)
  1. CHAMPIX [Suspect]
     Indication: SMOKING CESSATION THERAPY
     Dosage: 1 MG, 2X/DAY
     Route: 048
     Dates: start: 20090214, end: 20090302
  2. AMOXICILLIN [Concomitant]
     Indication: DENTAL CARE

REACTIONS (4)
  - DYSPNOEA [None]
  - LIP SWELLING [None]
  - PARAESTHESIA ORAL [None]
  - RASH GENERALISED [None]
